FAERS Safety Report 24432754 (Version 2)
Quarter: 2024Q4

REPORT INFORMATION
  Report Type: Spontaneous
  Country: US (occurrence: US)
  Receive Date: 20241014
  Receipt Date: 20241014
  Transmission Date: 20250115
  Serious: Yes (Other)
  Sender: ROCHE
  Company Number: US-ROCHE-10000100092

PATIENT
  Age: 69 Year
  Sex: Female
  Weight: 63.5 kg

DRUGS (3)
  1. GAZYVA [Suspect]
     Active Substance: OBINUTUZUMAB
     Indication: Chronic lymphocytic leukaemia
     Route: 065
     Dates: start: 20190710, end: 201912
  2. GAZYVA [Suspect]
     Active Substance: OBINUTUZUMAB
     Route: 065
     Dates: start: 20240409, end: 20240604
  3. VENCLEXTA [Suspect]
     Active Substance: VENETOCLAX
     Indication: Chronic lymphocytic leukaemia
     Route: 065
     Dates: start: 20240604, end: 20240628

REACTIONS (8)
  - Arthritis [Unknown]
  - Carpal tunnel syndrome [Unknown]
  - Rash [Unknown]
  - Myalgia [Unknown]
  - Serum sickness [Unknown]
  - Neuralgia [Unknown]
  - Chronic lymphocytic leukaemia recurrent [Unknown]
  - Depression [Unknown]

NARRATIVE: CASE EVENT DATE: 20240604
